FAERS Safety Report 4287583-X (Version None)
Quarter: 2004Q1

REPORT INFORMATION
  Report Type: 
  Country: None (occurrence: None)
  Receive Date: 20040205
  Receipt Date: 20040119
  Transmission Date: 20041129
  Serious: Yes (Death, Other)
  Sender: FDA-Public Use
  Company Number: USA031051179

PATIENT
  Age: 74 Year
  Sex: Female
  Weight: 35 kg

DRUGS (2)
  1. FORTEO [Suspect]
     Indication: OSTEOPOROSIS
     Dosage: 20 UG/DAY
     Dates: start: 20030801, end: 20031021
  2. FOSAMAX [Concomitant]

REACTIONS (5)
  - DRUG EFFECT DECREASED [None]
  - METASTASES TO BONE [None]
  - METASTASES TO LUNG [None]
  - METASTASIS [None]
  - MULTIPLE MYELOMA [None]
